FAERS Safety Report 19996761 (Version 2)
Quarter: 2021Q4

REPORT INFORMATION
  Report Type: Spontaneous
  Country: US (occurrence: US)
  Receive Date: 20211026
  Receipt Date: 20211101
  Transmission Date: 20220303
  Serious: Yes (Other)
  Sender: FDA-Public Use
  Company Number: US-OTSUKA-2021_036421

PATIENT
  Age: 76 Year
  Sex: Female

DRUGS (4)
  1. REXULTI [Suspect]
     Active Substance: BREXPIPRAZOLE
     Indication: Depression
     Dosage: 0.5 MG
     Route: 048
     Dates: start: 20211016, end: 20211017
  2. REXULTI [Suspect]
     Active Substance: BREXPIPRAZOLE
     Indication: Anxiety
  3. LIPITOR [Concomitant]
     Active Substance: ATORVASTATIN CALCIUM
     Indication: Product used for unknown indication
     Dosage: UNK
     Route: 065
  4. PANTOPRAZOLE [Concomitant]
     Active Substance: PANTOPRAZOLE
     Indication: Product used for unknown indication
     Dosage: UNK
     Route: 065

REACTIONS (7)
  - Mouth swelling [Recovered/Resolved]
  - Abnormal behaviour [Recovered/Resolved]
  - Poor quality sleep [Recovered/Resolved]
  - Agitation [Recovered/Resolved]
  - Thinking abnormal [Recovered/Resolved]
  - Anxiety [Recovered/Resolved]
  - Product use in unapproved indication [Unknown]

NARRATIVE: CASE EVENT DATE: 20211016
